FAERS Safety Report 8372930-X (Version None)
Quarter: 2012Q2

REPORT INFORMATION
  Report Type: 
  Country: None (occurrence: None)
  Receive Date: 20120521
  Receipt Date: 20120126
  Transmission Date: 20120825
  Serious: No
  Sender: FDA-Public Use
  Company Number: US-ASTRAZENECA-2012SE09913

PATIENT
  Sex: Female

DRUGS (13)
  1. BIBIATRIOX [Concomitant]
  2. PRILOSEC OTC [Suspect]
     Route: 048
  3. PRILOSEC OTC [Suspect]
     Route: 048
  4. HYDROCHLOROTHIAZIDE [Concomitant]
  5. ASCORBIC ACID [Concomitant]
     Dosage: UNKNOWN
  6. VITAMIN D [Concomitant]
     Dosage: UNKNOWN
  7. VITAMIN B6 [Concomitant]
     Dosage: UNKNOWN
  8. METFORMIN HCL [Concomitant]
  9. CALCIUM+VIT D [Concomitant]
     Dosage: UNKNOWN
  10. PERSANTINE [Concomitant]
  11. PRILOSEC OTC [Suspect]
     Indication: FLATULENCE
     Route: 048
     Dates: start: 20120106, end: 20120120
  12. PRILOSEC OTC [Suspect]
     Indication: DYSPEPSIA
     Route: 048
     Dates: start: 20120106, end: 20120120
  13. LATANOPROST [Concomitant]

REACTIONS (3)
  - OFF LABEL USE [None]
  - NAUSEA [None]
  - DRUG INEFFECTIVE [None]
